FAERS Safety Report 6259410-2 (Version None)
Quarter: 2009Q2

REPORT INFORMATION
  Report Type: 
  Country: None (occurrence: None)
  Receive Date: 20090630
  Receipt Date: 20090616
  Transmission Date: 20091009
  Serious: Yes (Other)
  Sender: FDA-Public Use
  Company Number: CART-1000026

PATIENT
  Age: 36 Year
  Sex: Female

DRUGS (1)
  1. CARTICEL [Suspect]
     Indication: CARTILAGE INJURY
     Dosage: INTRA-ARTICULAR  CARTILAGE INJURY (NOT CODED) CC27841

REACTIONS (3)
  - ARTHRITIS INFECTIVE [None]
  - POST PROCEDURAL HAEMATOMA [None]
  - POST PROCEDURAL INFECTION [None]
